FAERS Safety Report 16397934 (Version 1)
Quarter: 2019Q2

REPORT INFORMATION
  Report Type: Spontaneous
  Country: US (occurrence: US)
  Receive Date: 20190606
  Receipt Date: 20190606
  Transmission Date: 20190711
  Serious: No
  Sender: FDA-Public Use
  Company Number: US-GLAXOSMITHKLINE-US2019099172

PATIENT
  Age: 85 Year
  Sex: Female

DRUGS (1)
  1. ALLI [Suspect]
     Active Substance: ORLISTAT
     Indication: WEIGHT LOSS DIET
     Dosage: 1 DF, TID
     Route: 048
     Dates: start: 2016, end: 201805

REACTIONS (3)
  - Steatorrhoea [Recovered/Resolved]
  - Malaise [Unknown]
  - Faeces discoloured [Recovered/Resolved]
